FAERS Safety Report 20681795 (Version 1)
Quarter: 2022Q2

REPORT INFORMATION
  Report Type: Spontaneous
  Country: CN (occurrence: None)
  Receive Date: 20220407
  Receipt Date: 20220407
  Transmission Date: 20220721
  Serious: Yes (Other)
  Sender: FDA-Public Use
  Company Number: CN-Allegis Pharmaceuticals, LLC-APL202204-000017

PATIENT
  Age: 62 Year
  Sex: Male

DRUGS (2)
  1. NITROGLYCERIN [Suspect]
     Active Substance: NITROGLYCERIN
     Indication: Chest discomfort
     Dosage: UNKNOWN
     Route: 042
  2. NITROGLYCERIN [Suspect]
     Active Substance: NITROGLYCERIN
     Route: 060

REACTIONS (5)
  - Electrocardiogram ST segment elevation [Recovered/Resolved]
  - Syncope [Recovered/Resolved]
  - Bradycardia [Recovered/Resolved]
  - Chest discomfort [Recovered/Resolved]
  - Hypotension [Recovered/Resolved]
